FAERS Safety Report 8928708 (Version 3)
Quarter: 2013Q1

REPORT INFORMATION
  Report Type: Spontaneous
  Country: None (occurrence: US)
  Receive Date: 20121127
  Receipt Date: 20130211
  Transmission Date: 20140127
  Serious: Yes (Other)
  Sender: FDA-Public Use
  Company Number: US-TEVA-371568USA

PATIENT
  Sex: Female

DRUGS (2)
  1. PROAIR HFA [Suspect]
     Indication: ASTHMA
     Dosage: PRN
  2. PROAIR HFA [Suspect]
     Indication: HYPERSENSITIVITY

REACTIONS (2)
  - Renal cell carcinoma [Not Recovered/Not Resolved]
  - Infection [Unknown]
